FAERS Safety Report 8758628 (Version 1)
Quarter: 2012Q4

REPORT INFORMATION
  Report Type: 
  Country: DE (occurrence: DE)
  Receive Date: 20120829
  Receipt Date: 20120829
  Transmission Date: 20130627
  Serious: Yes (Other)
  Sender: FDA-Public Use
  Company Number: DE-009507513-1208DEU000033

PATIENT

DRUGS (4)
  1. REMERGIL SOLTAB [Suspect]
     Indication: DEPRESSION
     Dosage: UNK
     Route: 048
     Dates: start: 2011, end: 2012
  2. CONCOR [Concomitant]
     Indication: CARDIAC DISORDER
     Dosage: 2.5 mg, UNK
     Route: 048
  3. CLAVERSAL [Concomitant]
  4. FLECAINIDE ACETATE [Concomitant]

REACTIONS (4)
  - Chromatopsia [Not Recovered/Not Resolved]
  - Urine flow decreased [Not Recovered/Not Resolved]
  - Urinary retention [Not Recovered/Not Resolved]
  - Dry mouth [Not Recovered/Not Resolved]
